FAERS Safety Report 13175627 (Version 1)
Quarter: 2017Q1

REPORT INFORMATION
  Report Type: Spontaneous
  Country: US (occurrence: US)
  Receive Date: 20170131
  Receipt Date: 20170131
  Transmission Date: 20170428
  Serious: Yes (Disabling, Other)
  Sender: FDA-Public Use
  Company Number: None

PATIENT
  Age: 79 Year
  Sex: Male
  Weight: 67.5 kg

DRUGS (4)
  1. VITAMIN D [Concomitant]
     Active Substance: CHOLECALCIFEROL
  2. ATENOLOL. [Concomitant]
     Active Substance: ATENOLOL
  3. DAILY VITAMIN [Concomitant]
     Active Substance: VITAMINS
  4. OFEV [Suspect]
     Active Substance: NINTEDANIB
     Indication: SCAR

REACTIONS (3)
  - Diarrhoea [None]
  - Weight decreased [None]
  - Depression [None]

NARRATIVE: CASE EVENT DATE: 20160215
